FAERS Safety Report 11802174 (Version 1)
Quarter: 2015Q4

REPORT INFORMATION
  Report Type: Spontaneous
  Country: US (occurrence: US)
  Receive Date: 20151204
  Receipt Date: 20151204
  Transmission Date: 20160305
  Serious: No
  Sender: FDA-Public Use
  Company Number: US-SA-2015SA133571

PATIENT
  Sex: Female

DRUGS (1)
  1. NORPRAMIN [Suspect]
     Active Substance: DESIPRAMINE HYDROCHLORIDE
     Route: 065

REACTIONS (1)
  - Hypersensitivity [Unknown]
